FAERS Safety Report 18320756 (Version 1)
Quarter: 2020Q3

REPORT INFORMATION
  Report Type: Spontaneous
  Country: US (occurrence: US)
  Receive Date: 20200928
  Receipt Date: 20200928
  Transmission Date: 20201103
  Serious: Yes (Other)
  Sender: FDA-Public Use
  Company Number: US-FRESENIUS MEDICAL CARE RENAL THERAPIES GROUP-FMC-2009-001079

PATIENT
  Age: 73 Year
  Sex: Female
  Weight: 105.6 kg

DRUGS (12)
  1. DELFLEX [Suspect]
     Active Substance: CALCIUM CHLORIDE\DEXTROSE\MAGNESIUM CHLORIDE\SODIUM CHLORIDE\SODIUM LACTATE
     Indication: END STAGE RENAL DISEASE
     Dosage: 4 CYCLES OF 2500 ML
     Route: 033
  2. NORCO [Concomitant]
     Active Substance: ACETAMINOPHEN\HYDROCODONE BITARTRATE
  3. ASPIRIN. [Concomitant]
     Active Substance: ASPIRIN
  4. TUMS [Concomitant]
     Active Substance: CALCIUM CARBONATE
  5. TEGRETOL [Concomitant]
     Active Substance: CARBAMAZEPINE
  6. ALLOPURINOL. [Concomitant]
     Active Substance: ALLOPURINOL
  7. PLAVIX [Concomitant]
     Active Substance: CLOPIDOGREL BISULFATE
  8. ANCEF [Concomitant]
     Active Substance: CEFAZOLIN SODIUM
  9. IMDUR [Concomitant]
     Active Substance: ISOSORBIDE MONONITRATE
  10. ATORVASTATIN [Concomitant]
     Active Substance: ATORVASTATIN
  11. FOLIC ACID. [Concomitant]
     Active Substance: FOLIC ACID
  12. ZOFRAN [Concomitant]
     Active Substance: ONDANSETRON HYDROCHLORIDE

REACTIONS (1)
  - Peritonitis bacterial [Recovered/Resolved]
